FAERS Safety Report 4702579-9 (Version None)
Quarter: 2005Q2

REPORT INFORMATION
  Report Type: 
  Country: None (occurrence: None)
  Receive Date: 20050629
  Receipt Date: 20050614
  Transmission Date: 20051028
  Serious: Yes (Life-Threatening, Hospitalization)
  Sender: FDA-Public Use
  Company Number: SEWYE744115JUN05

PATIENT
  Sex: Female

DRUGS (2)
  1. ENBREL [Suspect]
     Indication: RHEUMATOID ARTHRITIS
     Route: 058
     Dates: start: 20050101, end: 20050301
  2. PREDNISOLONE [Concomitant]
     Indication: RHEUMATOID ARTHRITIS
     Dosage: 5 MG PER DAY STARTED IN THE AUTUMN OF 2004
     Route: 048
     Dates: start: 20040101

REACTIONS (12)
  - BONE MARROW TRANSPLANT [None]
  - BURSITIS INFECTIVE [None]
  - ERYTHEMA [None]
  - EXCORIATION [None]
  - FALL [None]
  - NEUROLOGICAL SYMPTOM [None]
  - NIGHT SWEATS [None]
  - OSTEOMYELITIS [None]
  - PAIN [None]
  - PARESIS [None]
  - PNEUMONIA [None]
  - STAPHYLOCOCCAL INFECTION [None]
